FAERS Safety Report 23218743 (Version 2)
Quarter: 2023Q4

REPORT INFORMATION
  Report Type: Spontaneous
  Country: US (occurrence: US)
  Receive Date: 20231122
  Receipt Date: 20231205
  Transmission Date: 20240109
  Serious: Yes (Other)
  Sender: FDA-Public Use
  Company Number: US-SANDOZ-SDZ2023US056673

PATIENT
  Sex: Female

DRUGS (1)
  1. RECLAST [Suspect]
     Active Substance: ZOLEDRONIC ACID
     Indication: Product used for unknown indication
     Dosage: UNK
     Route: 065
     Dates: start: 20231030

REACTIONS (13)
  - Gastric ulcer [Unknown]
  - Illness [Unknown]
  - Agitation [Recovered/Resolved]
  - Ophthalmic migraine [Unknown]
  - Visual impairment [Unknown]
  - Movement disorder [Unknown]
  - Arthralgia [Recovered/Resolved]
  - Dyspepsia [Unknown]
  - Pain [Unknown]
  - Cough [Unknown]
  - Abdominal pain upper [Unknown]
  - Vomiting [Unknown]
  - Pyrexia [Unknown]
